FAERS Safety Report 6199929-6 (Version None)
Quarter: 2009Q2

REPORT INFORMATION
  Report Type: 
  Country: None (occurrence: None)
  Receive Date: 20090522
  Receipt Date: 20090513
  Transmission Date: 20091009
  Serious: Yes (Hospitalization, Other)
  Sender: FDA-Public Use
  Company Number: US-BIOGENIDEC-2008BI020969

PATIENT
  Age: 61 Year
  Sex: Female
  Weight: 65 kg

DRUGS (1)
  1. TYSABRI [Suspect]
     Indication: MULTIPLE SCLEROSIS
     Route: 042
     Dates: start: 20070430, end: 20090311

REACTIONS (6)
  - BALANCE DISORDER [None]
  - INTERVERTEBRAL DISC DISPLACEMENT [None]
  - NERVE COMPRESSION [None]
  - PELVIC FRACTURE [None]
  - SCIATICA [None]
  - SPINAL FRACTURE [None]
